FAERS Safety Report 21192116 (Version 2)
Quarter: 2022Q4

REPORT INFORMATION
  Report Type: Spontaneous
  Country: JP (occurrence: JP)
  Receive Date: 20220809
  Receipt Date: 20221014
  Transmission Date: 20230113
  Serious: Yes (Death, Life-Threatening, Hospitalization, Other)
  Sender: FDA-Public Use
  Company Number: JP-PFIZER INC-PV202200037748

PATIENT
  Age: 82 Year
  Sex: Female
  Weight: 34 kg

DRUGS (7)
  1. PAXLOVID [Suspect]
     Active Substance: NIRMATRELVIR\RITONAVIR
     Indication: COVID-19 treatment
     Dosage: 300 MG, 2X/DAY
     Route: 048
     Dates: start: 20220729, end: 20220731
  2. URAPIDIL [Concomitant]
     Active Substance: URAPIDIL
  3. VONOPRAZAN FUMARATE [Concomitant]
     Active Substance: VONOPRAZAN FUMARATE
  4. NIFEDIPINE [Concomitant]
     Active Substance: NIFEDIPINE
  5. FOLIC ACID [Concomitant]
     Active Substance: FOLIC ACID
  6. FERROUS CITRATE [Concomitant]
     Active Substance: FERROUS CITRATE
  7. BONALON [Concomitant]
     Active Substance: ALENDRONATE SODIUM

REACTIONS (5)
  - Gastrointestinal necrosis [Fatal]
  - Colitis [Fatal]
  - Haematemesis [Unknown]
  - Mesenteric artery thrombosis [Unknown]
  - Incorrect dose administered by product [Unknown]

NARRATIVE: CASE EVENT DATE: 20220729
